FAERS Safety Report 10342289 (Version 5)
Quarter: 2015Q1

REPORT INFORMATION
  Report Type: Report from Study
  Country: KR (occurrence: KR)
  Receive Date: 20140725
  Receipt Date: 20150220
  Transmission Date: 20150720
  Serious: Yes (Life-Threatening, Hospitalization, Disabling)
  Sender: FDA-Public Use
  Company Number: KR-SA-2014SA097917

PATIENT
  Age: 24 Month
  Sex: Male
  Weight: 12.5 kg

DRUGS (13)
  1. MEROPEN [Concomitant]
     Active Substance: MEROPENEM
     Route: 042
     Dates: start: 20150102, end: 20150102
  2. KEPPRA [Concomitant]
     Active Substance: LEVETIRACETAM
     Route: 048
     Dates: start: 20140809
  3. METHYLPHENIDATE [Concomitant]
     Active Substance: METHYLPHENIDATE
     Route: 042
     Dates: start: 20140711, end: 20140807
  4. ANTI-THYMOCYTE GLOBULIN (RABBIT)/RABBIT ANTI-HUMAN THYMOCYTE IMMUNOGLOBULIN [Suspect]
     Active Substance: LAPINE T-LYMPHOCYTE IMMUNE GLOBULIN
     Indication: APLASTIC ANAEMIA
     Route: 042
     Dates: start: 20140711, end: 20140715
  5. UNASYN [Concomitant]
     Active Substance: AMPICILLIN SODIUM\SULBACTAM SODIUM
     Route: 042
     Dates: start: 20141227, end: 20141230
  6. TAZOCIN [Concomitant]
     Active Substance: PIPERACILLIN SODIUM\TAZOBACTAM SODIUM
     Route: 042
     Dates: start: 20141230, end: 20141231
  7. TEICOCIN [Concomitant]
     Route: 042
     Dates: start: 20140718
  8. GENTAMICIN. [Concomitant]
     Active Substance: GENTAMICIN
     Route: 042
     Dates: start: 20140718, end: 20140724
  9. VANCOMYCIN [Concomitant]
     Active Substance: VANCOMYCIN
     Route: 042
     Dates: start: 20150102, end: 20150102
  10. LAMICTAL [Concomitant]
     Active Substance: LAMOTRIGINE
     Route: 048
     Dates: start: 20141222
  11. CYCLOSPORINE. [Concomitant]
     Active Substance: CYCLOSPORINE
     Route: 048
     Dates: start: 20140711
  12. TOPAMAX [Concomitant]
     Active Substance: TOPIRAMATE
     Route: 048
     Dates: start: 20141222
  13. MEROPEN [Concomitant]
     Active Substance: MEROPENEM
     Route: 042
     Dates: start: 20140713, end: 20140930

REACTIONS (9)
  - Meningitis listeria [Recovered/Resolved with Sequelae]
  - Device related infection [Recovered/Resolved]
  - Neutropenia [None]
  - Sepsis [Recovered/Resolved with Sequelae]
  - Burkholderia cepacia complex infection [None]
  - Listeria sepsis [None]
  - Haemorrhage intracranial [Not Recovered/Not Resolved]
  - Thrombocytopenia [None]
  - Encephalopathy [Recovering/Resolving]

NARRATIVE: CASE EVENT DATE: 20140720
